FAERS Safety Report 23636242 (Version 3)
Quarter: 2024Q2

REPORT INFORMATION
  Report Type: Report from Study
  Country: CA (occurrence: None)
  Receive Date: 20240315
  Receipt Date: 20240405
  Transmission Date: 20240716
  Serious: Yes (Life-Threatening, Hospitalization)
  Sender: FDA-Public Use
  Company Number: 2024A062575

PATIENT
  Sex: Male

DRUGS (1)
  1. IMFINZI [Suspect]
     Active Substance: DURVALUMAB
     Indication: Bile duct cancer
     Dates: start: 20230928

REACTIONS (5)
  - Lung disorder [Unknown]
  - Malaise [Unknown]
  - Terminal state [Unknown]
  - Fibrosis [Unknown]
  - Liver disorder [Unknown]
